FAERS Safety Report 15812672 (Version 1)
Quarter: 2019Q1

REPORT INFORMATION
  Report Type: Spontaneous
  Country: US (occurrence: US)
  Receive Date: 20190103
  Receipt Date: 20190103
  Transmission Date: 20190417
  Serious: No
  Sender: FDA-Public Use
  Company Number: None

PATIENT

DRUGS (4)
  1. LIDOCAINE HYDROCHLORIDE 2% SINGLE DOSE VIAL [Suspect]
     Active Substance: LIDOCAINE HYDROCHLORIDE
     Dosage: ?          OTHER DOSE:10 X 2ML;OTHER ROUTE:INJECTION?
  2. LIDOCAINE HYDROCHLORIDE LIDOCAINE HCL 2% VIAL [Suspect]
     Active Substance: LIDOCAINE HYDROCHLORIDE
     Dosage: ?          OTHER ROUTE:INJECTION?
  3. XYLOCAINE MPF WITH EPINEPHRINE [Suspect]
     Active Substance: EPINEPHRINE BITARTRATE\LIDOCAINE HYDROCHLORIDE
     Dosage: ?          OTHER ROUTE:INJECTION?
  4. XYLOCAINE WITH EPINEPHRINE [Suspect]
     Active Substance: EPINEPHRINE BITARTRATE\LIDOCAINE HYDROCHLORIDE
     Dosage: ?          OTHER ROUTE:INJECTION?

REACTIONS (2)
  - Haemodynamic instability [None]
  - Incorrect product dosage form administered [None]
